FAERS Safety Report 24676064 (Version 1)
Quarter: 2024Q4

REPORT INFORMATION
  Report Type: Spontaneous
  Country: CH (occurrence: CH)
  Receive Date: 20241128
  Receipt Date: 20241128
  Transmission Date: 20250115
  Serious: Yes (Hospitalization, Other)
  Sender: PFIZER
  Company Number: None

PATIENT
  Age: 50 Year
  Sex: Male
  Weight: 80 kg

DRUGS (15)
  1. LORAZEPAM [Suspect]
     Active Substance: LORAZEPAM
     Dosage: 0.25, 1X/DAY (EVENING)
     Route: 048
     Dates: start: 202012
  2. LORAZEPAM [Suspect]
     Active Substance: LORAZEPAM
     Dosage: 2.5 MG 1X/DAY
     Route: 048
     Dates: start: 20210209, end: 202104
  3. LORAZEPAM [Suspect]
     Active Substance: LORAZEPAM
     Dosage: 0.5-1 MG 1X/DAY
     Route: 048
     Dates: start: 202104, end: 20210816
  4. LORAZEPAM [Suspect]
     Active Substance: LORAZEPAM
     Dosage: UNK
     Route: 048
     Dates: end: 202407
  5. PRAZEPAM [Suspect]
     Active Substance: PRAZEPAM
     Indication: Drug withdrawal syndrome
     Dosage: 21.5 MG, 1X/DAY (42 DROPS DISTRIBUTED MORNING AND EVENING)
     Route: 048
     Dates: start: 20211209, end: 202203
  6. PRAZEPAM [Suspect]
     Active Substance: PRAZEPAM
     Dosage: 30 MG, 1X/DAY ((42 DROPS)
     Route: 048
     Dates: start: 202203, end: 202203
  7. REBOXETINE [Suspect]
     Active Substance: REBOXETINE
     Dosage: UNK
  8. OXAZEPAM [Suspect]
     Active Substance: OXAZEPAM
     Indication: Insomnia
     Dosage: 10-15 MG, 1X/DAY (EVENING)
     Route: 048
     Dates: start: 20201211, end: 202102
  9. OXAZEPAM [Suspect]
     Active Substance: OXAZEPAM
     Dosage: UNK
     Dates: end: 202407
  10. XANAX [Suspect]
     Active Substance: ALPRAZOLAM
     Indication: Drug withdrawal syndrome
     Dosage: 0.5 MG, 2X/DAY
     Route: 048
     Dates: start: 20210816, end: 202108
  11. BROMAZEPAM [Suspect]
     Active Substance: BROMAZEPAM
     Indication: Drug withdrawal syndrome
     Dosage: 3 MG, 3X/DAY
     Route: 048
     Dates: start: 202108, end: 202112
  12. VALIUM [Suspect]
     Active Substance: DIAZEPAM
     Indication: Drug withdrawal syndrome
     Dosage: 7.5-25 MG, 1X/DAY
     Route: 048
     Dates: start: 20220402, end: 2022
  13. RIVOTRIL [Suspect]
     Active Substance: CLONAZEPAM
     Indication: Drug withdrawal syndrome
     Dosage: 0.5 MG, 3X/DAY
     Route: 048
     Dates: start: 20220415, end: 202204
  14. BROMAZEPAM [Suspect]
     Active Substance: BROMAZEPAM
     Dosage: 1-12 MG, 1X/DAY (0-12 TABLETS PER DAY)
     Dates: start: 202210
  15. FLUVOXAMINE [Suspect]
     Active Substance: FLUVOXAMINE
     Dosage: 250 MG, 1X/DAY (EVENING)

REACTIONS (14)
  - Drug withdrawal syndrome [Not Recovered/Not Resolved]
  - Anxiety [Not Recovered/Not Resolved]
  - Mental impairment [Unknown]
  - Myalgia [Not Recovered/Not Resolved]
  - Muscle tightness [Not Recovered/Not Resolved]
  - Insomnia [Not Recovered/Not Resolved]
  - Disturbance in attention [Not Recovered/Not Resolved]
  - Balance disorder [Not Recovered/Not Resolved]
  - Feeling of despair [Not Recovered/Not Resolved]
  - General physical health deterioration [Not Recovered/Not Resolved]
  - Compulsions [Not Recovered/Not Resolved]
  - Photophobia [Not Recovered/Not Resolved]
  - Somnolence [Unknown]
  - Tension [Unknown]

NARRATIVE: CASE EVENT DATE: 20201201
